FAERS Safety Report 7885377-7 (Version None)
Quarter: 2011Q4

REPORT INFORMATION
  Report Type: 
  Country: None (occurrence: None)
  Receive Date: 20111102
  Receipt Date: 20111027
  Transmission Date: 20120403
  Serious: No
  Sender: FDA-Public Use
  Company Number: US-PFIZER INC-2011225760

PATIENT

DRUGS (1)
  1. ZOCOR [Suspect]

REACTIONS (1)
  - PLATELET COUNT ABNORMAL [None]
